FAERS Safety Report 20834404 (Version 1)
Quarter: 2022Q2

REPORT INFORMATION
  Report Type: Spontaneous
  Country: US (occurrence: US)
  Receive Date: 20220516
  Receipt Date: 20220516
  Transmission Date: 20220721
  Serious: Yes (Other)
  Sender: FDA-Public Use
  Company Number: US-ALLERGAN-2215485US

PATIENT
  Sex: Female

DRUGS (1)
  1. LATISSE [Suspect]
     Active Substance: BIMATOPROST
     Indication: Growth of eyelashes
     Dosage: UNK, QD
     Route: 061
     Dates: start: 202106, end: 202110

REACTIONS (3)
  - Blindness [Recovering/Resolving]
  - Meibomian gland dysfunction [Recovering/Resolving]
  - Corneal abrasion [Recovering/Resolving]

NARRATIVE: CASE EVENT DATE: 20211101
